FAERS Safety Report 8127380-8 (Version None)
Quarter: 2012Q1

REPORT INFORMATION
  Report Type: 
  Country: None (occurrence: None)
  Receive Date: 20120210
  Receipt Date: 20120203
  Transmission Date: 20120608
  Serious: Yes (Death, Hospitalization, Other)
  Sender: FDA-Public Use
  Company Number: RO-BRISTOL-MYERS SQUIBB COMPANY-16297038

PATIENT
  Age: 66 Year
  Sex: Male

DRUGS (5)
  1. YERVOY [Suspect]
     Indication: MALIGNANT MELANOMA
     Dosage: DOSE:3MG/KG EVERY 3 WEEKS,195MG,EXPIRY DT:02AUG2013.
     Route: 042
     Dates: start: 20111121, end: 20111213
  2. METOCLOPRAMIDE [Concomitant]
     Dosage: DOSE:3V/DAY
  3. PANTOPRAZOLE [Concomitant]
     Dosage: 2 TABS PER DAY
  4. BACLOFEN [Concomitant]
     Dosage: 3 TABS PER DAY
  5. FILGRASTIM [Suspect]
     Dosage: 1DF=30MU
     Route: 058

REACTIONS (5)
  - DYSPNOEA [None]
  - NAUSEA [None]
  - NEUTROPENIA [None]
  - CARDIAC ARREST [None]
  - VOMITING [None]
